FAERS Safety Report 17488287 (Version 1)
Quarter: 2020Q1

REPORT INFORMATION
  Report Type: Spontaneous
  Country: US (occurrence: US)
  Receive Date: 20200302
  Receipt Date: 20200302
  Transmission Date: 20200409
  Serious: Yes (Other)
  Sender: FDA-Public Use
  Company Number: None

PATIENT
  Age: 51 Year
  Sex: Female
  Weight: 77.67 kg

DRUGS (2)
  1. DICYCLOMINE [Concomitant]
     Active Substance: DICYCLOMINE HYDROCHLORIDE
  2. LINZESS [Suspect]
     Active Substance: LINACLOTIDE
     Indication: INFLAMMATORY BOWEL DISEASE
     Dosage: ?          OTHER STRENGTH:MCG;QUANTITY:1 CAPSULE(S);?
     Route: 048
     Dates: start: 20200229, end: 20200229

REACTIONS (4)
  - Nausea [None]
  - Dizziness [None]
  - Chest pain [None]
  - Chest discomfort [None]

NARRATIVE: CASE EVENT DATE: 20200229
